FAERS Safety Report 8455180-8 (Version None)
Quarter: 2012Q2

REPORT INFORMATION
  Report Type: 
  Country: None (occurrence: None)
  Receive Date: 20120621
  Receipt Date: 20120614
  Transmission Date: 20120825
  Serious: Yes (Other)
  Sender: FDA-Public Use
  Company Number: FR-BAXTER-2012BAX002817

PATIENT
  Sex: Female
  Weight: 51 kg

DRUGS (1)
  1. GAMMAGARD [Suspect]
     Indication: HYPOGAMMAGLOBULINAEMIA
     Route: 042
     Dates: start: 20120330, end: 20120330

REACTIONS (4)
  - OXYGEN SATURATION DECREASED [None]
  - CYANOSIS [None]
  - TREMOR [None]
  - BODY TEMPERATURE INCREASED [None]
